FAERS Safety Report 4759675-X (Version None)
Quarter: 2005Q3

REPORT INFORMATION
  Report Type: 
  Country: None (occurrence: None)
  Receive Date: 20050901
  Receipt Date: 20050607
  Transmission Date: 20060218
  Serious: Yes (Hospitalization, Other)
  Sender: FDA-Public Use
  Company Number: US-MERCK-0506USA01431

PATIENT
  Age: 66 Year
  Sex: Male
  Weight: 82 kg

DRUGS (11)
  1. VIOXX [Suspect]
     Indication: ARTHRITIS
     Route: 048
     Dates: start: 20011101, end: 20040901
  2. GLUCOPHAGE [Concomitant]
     Indication: DIABETES MELLITUS
     Route: 048
  3. METOCLOPRAMIDE [Concomitant]
     Route: 048
  4. GLYBURIDE [Concomitant]
     Indication: DIABETES MELLITUS
     Route: 048
  5. PROPOXYPHENE NAPSYLATE [Concomitant]
     Route: 048
  6. MOXIFLOXACIN HYDROCHLORIDE [Concomitant]
     Route: 048
  7. FLOMAX [Concomitant]
     Route: 048
  8. FOLIC ACID [Concomitant]
     Route: 048
  9. ISOSORBIDE [Concomitant]
     Route: 048
  10. DOCUSATE CALCIUM [Concomitant]
     Route: 048
  11. [THERAPY UNSPECIFIED] [Concomitant]
     Route: 048

REACTIONS (8)
  - CARDIAC DISORDER [None]
  - CARDIOVASCULAR DISORDER [None]
  - CEREBROVASCULAR ACCIDENT [None]
  - CORONARY ARTERIAL STENT INSERTION [None]
  - INJURY [None]
  - ORGAN FAILURE [None]
  - PAIN [None]
  - PNEUMONIA [None]
